FAERS Safety Report 19615709 (Version 1)
Quarter: 2021Q3

REPORT INFORMATION
  Report Type: Spontaneous
  Country: CA (occurrence: CA)
  Receive Date: 20210727
  Receipt Date: 20210727
  Transmission Date: 20211014
  Serious: Yes (Hospitalization)
  Sender: FDA-Public Use
  Company Number: CA-PFIZER INC-2021907527

PATIENT
  Age: 62 Year
  Sex: Female
  Weight: 61 kg

DRUGS (1)
  1. METHOTREXATE SODIUM. [Suspect]
     Active Substance: METHOTREXATE SODIUM
     Dosage: 15 MG, 1 EVERY 1 WEEKS
     Route: 048

REACTIONS (4)
  - Non-alcoholic steatohepatitis [Unknown]
  - Hepatic cirrhosis [Unknown]
  - Hepatotoxicity [Unknown]
  - Drug-induced liver injury [Unknown]
